FAERS Safety Report 18312364 (Version 5)
Quarter: 2022Q2

REPORT INFORMATION
  Report Type: Report from Study
  Country: IN (occurrence: IN)
  Receive Date: 20200925
  Receipt Date: 20220414
  Transmission Date: 20220721
  Serious: Yes (Other)
  Sender: FDA-Public Use
  Company Number: PHHY2019IN139840

PATIENT
  Age: 43 Year
  Sex: Female

DRUGS (5)
  1. CERITINIB [Suspect]
     Active Substance: CERITINIB
     Indication: Non-small cell lung cancer
     Dosage: 450 MG, QD
     Route: 048
     Dates: start: 20180830, end: 201810
  2. CERITINIB [Suspect]
     Active Substance: CERITINIB
     Dosage: 300 MG, QD
     Route: 048
     Dates: start: 201810, end: 20190612
  3. CERITINIB [Suspect]
     Active Substance: CERITINIB
     Dosage: UNK (300 MG OD ALTERNATE WITH 150 MG OD)
     Route: 048
     Dates: start: 20190613
  4. CERITINIB [Suspect]
     Active Substance: CERITINIB
     Dosage: 300 MG, QD
     Route: 065
  5. CERITINIB [Suspect]
     Active Substance: CERITINIB
     Dosage: UNK (300 MG OD ALTERNATE WITH 150 MG OD)
     Route: 065
     Dates: start: 20220405

REACTIONS (3)
  - Fatigue [Unknown]
  - Blood creatinine increased [Recovered/Resolved]
  - Product use issue [Unknown]

NARRATIVE: CASE EVENT DATE: 20180801
